FAERS Safety Report 22216086 (Version 6)
Quarter: 2024Q4

REPORT INFORMATION
  Report Type: Spontaneous
  Country: US (occurrence: US)
  Receive Date: 20230417
  Receipt Date: 20241024
  Transmission Date: 20250115
  Serious: Yes (Other)
  Sender: SANOFI AVENTIS
  Company Number: US-SA-SAC20220721001287

PATIENT
  Age: 29 Year
  Sex: Male

DRUGS (3)
  1. ELOCTATE [Suspect]
     Active Substance: EFMOROCTOCOG ALFA
     Dosage: 1650 U (+/- 10%), QOW
     Route: 042
  2. ELOCTATE [Suspect]
     Active Substance: EFMOROCTOCOG ALFA
     Dosage: 3000 U; (+/- 10%) EVERY DAY FOR 7 DAYS, THEN EVERY OTHER DAY FOR THE NEXT 7 DAYS AS DIRECTED
     Route: 042
  3. ELOCTATE [Suspect]
     Active Substance: EFMOROCTOCOG ALFA
     Dosage: 1750 U, Q4D (EVERY FOUR DAYS AND PRN)
     Route: 042

REACTIONS (4)
  - Haemorrhage [Recovered/Resolved]
  - Haemorrhage [Recovered/Resolved]
  - Muscle haemorrhage [Not Recovered/Not Resolved]
  - Cough [Unknown]

NARRATIVE: CASE EVENT DATE: 20220701
